FAERS Safety Report 8000277-X (Version None)
Quarter: 2011Q4

REPORT INFORMATION
  Report Type: 
  Country: None (occurrence: None)
  Receive Date: 20111216
  Receipt Date: 20111208
  Transmission Date: 20120403
  Serious: Yes (Death)
  Sender: FDA-Public Use
  Company Number: DKLU1075397

PATIENT
  Age: 35 Year
  Sex: Female

DRUGS (2)
  1. OXCARBAZEPINE [Suspect]
     Indication: EPILEPSY
     Dosage: 2100 MG MILLIGRAM(S)
  2. SABRIL [Suspect]
     Indication: EPILEPSY
     Dosage: 2500 MG MILLIGRAM(S)

REACTIONS (1)
  - SUDDEN UNEXPLAINED DEATH IN EPILEPSY [None]
